FAERS Safety Report 5781624-6 (Version None)
Quarter: 2008Q2

REPORT INFORMATION
  Report Type: 
  Country: None (occurrence: None)
  Receive Date: 20080623
  Receipt Date: 20080612
  Transmission Date: 20081010
  Serious: Yes (Other)
  Sender: FDA-Public Use
  Company Number: JP-JNJFOC-20080603413

PATIENT
  Age: 5 Decade
  Sex: Male

DRUGS (4)
  1. RISPERDAL [Suspect]
     Dosage: PATIENT WAS RECEIVING 2ML X 2 FOR THREE TIMES DAILY
     Route: 048
  2. RISPERDAL [Suspect]
     Indication: SCHIZOPHRENIA
     Route: 048
  3. BROMAZEPAM [Concomitant]
     Indication: SCHIZOPHRENIA
  4. CHLORPROMAZINE [Concomitant]
     Indication: SCHIZOPHRENIA

REACTIONS (3)
  - AGGRESSION [None]
  - POLYDIPSIA [None]
  - THIRST [None]
